FAERS Safety Report 4597986-1 (Version None)
Quarter: 2005Q2

REPORT INFORMATION
  Report Type: 
  Country: None (occurrence: None)
  Receive Date: 20050210
  Receipt Date: 20040910
  Transmission Date: 20051028
  Serious: Yes (Other)
  Sender: FDA-Public Use
  Company Number: M2004.1273

PATIENT
  Age: 18 Year
  Sex: Male
  Weight: 67 kg

DRUGS (5)
  1. LORATADINE [Suspect]
     Indication: LACRIMATION INCREASED
     Dosage: 1 TABLET ONCE
     Dates: start: 20040904
  2. LORATADINE [Suspect]
     Indication: RHINORRHOEA
     Dosage: 1 TABLET ONCE
     Dates: start: 20040904
  3. RETIN-A [Concomitant]
  4. MINOCYCLINE HCL [Concomitant]
  5. UNKNOWN ACNE CREAM [Concomitant]

REACTIONS (1)
  - SUPRAVENTRICULAR TACHYCARDIA [None]
